FAERS Safety Report 4831185-0 (Version None)
Quarter: 2005Q4

REPORT INFORMATION
  Report Type: 
  Country: None (occurrence: None)
  Receive Date: 20051116
  Receipt Date: 20051116
  Transmission Date: 20060501
  Serious: Yes (Other)
  Sender: FDA-Public Use
  Company Number: None

PATIENT
  Sex: Female
  Weight: 47.6277 kg

DRUGS (2)
  1. ABILIFY [Suspect]
     Indication: AUTISM
     Dosage: 10MG   ONCE DAILY
     Dates: start: 20050906, end: 20051114
  2. ABILIFY [Suspect]
     Indication: PSYCHOTIC DISORDER
     Dosage: 10MG   ONCE DAILY
     Dates: start: 20050906, end: 20051114

REACTIONS (4)
  - DROOLING [None]
  - DYSPHAGIA [None]
  - DYSPNOEA [None]
  - MUSCULOSKELETAL STIFFNESS [None]
